FAERS Safety Report 21874264 (Version 1)
Quarter: 2023Q1

REPORT INFORMATION
  Report Type: 
  Country: None (occurrence: None)
  Receive Date: 20230117
  Receipt Date: 20230117
  Transmission Date: 20230417
  Serious: Yes (Hospitalization, Other)
  Sender: FDA-Public Use
  Company Number: None

PATIENT
  Sex: Male

DRUGS (1)
  1. SULFAMETHOXAZOLE AND TRIMETHOPRIM [Suspect]
     Active Substance: SULFAMETHOXAZOLE\TRIMETHOPRIM

REACTIONS (13)
  - Acute kidney injury [Recovered/Resolved]
  - Haemophagocytic lymphohistiocytosis [Recovered/Resolved]
  - Pyrexia [Recovered/Resolved]
  - Chills [Recovered/Resolved]
  - Night sweats [Recovered/Resolved]
  - Rash [Recovered/Resolved]
  - Pancytopenia [Recovered/Resolved]
  - Hepatic enzyme increased [Recovered/Resolved]
  - Coagulopathy [Recovered/Resolved]
  - Hypertriglyceridaemia [Recovered/Resolved]
  - Hepatosplenomegaly [Recovered/Resolved]
  - Hyperbilirubinaemia [Not Recovered/Not Resolved]
  - Multiple organ dysfunction syndrome [Recovered/Resolved]
